FAERS Safety Report 4496972-X (Version None)
Quarter: 2004Q4

REPORT INFORMATION
  Report Type: 
  Country: None (occurrence: None)
  Receive Date: 20041109
  Receipt Date: 20041028
  Transmission Date: 20050328
  Serious: Yes (Disabling)
  Sender: FDA-Public Use
  Company Number: US-MERCK-0410USA04358

PATIENT
  Age: 83 Year
  Sex: Female

DRUGS (2)
  1. VYTORIN [Suspect]
     Indication: BLOOD CHOLESTEROL INCREASED
     Route: 048
     Dates: start: 20040929
  2. ANTIMICROBIAL (UNSPECIFIED) [Concomitant]
     Route: 065

REACTIONS (1)
  - FEELING DRUNK [None]
